FAERS Safety Report 9159154 (Version 1)
Quarter: 2013Q1

REPORT INFORMATION
  Report Type: Spontaneous
  Country: JP (occurrence: None)
  Receive Date: 20130207
  Receipt Date: 20130207
  Transmission Date: 20140127
  Serious: Yes (Other)
  Sender: FDA-Public Use
  Company Number: TCI2012A01082

PATIENT
  Sex: 0

DRUGS (1)
  1. NESINA [Suspect]
     Dosage: UNK.  PER ORAL?AROUND  01/FEB/2012  -  AROUND  25/FEB/2012
     Route: 048
     Dates: start: 20120201, end: 20120225

REACTIONS (1)
  - Myasthenia gravis [None]
